FAERS Safety Report 25030063 (Version 1)
Quarter: 2025Q1

REPORT INFORMATION
  Report Type: Spontaneous
  Country: US (occurrence: US)
  Receive Date: 20250303
  Receipt Date: 20250303
  Transmission Date: 20250409
  Serious: Yes (Death, Hospitalization)
  Sender: INGENUS
  Company Number: US-INGENUS PHARMACEUTICALS, LLC-2025INF000012

PATIENT
  Age: 72 Year
  Sex: Female

DRUGS (1)
  1. ARSENIC TRIOXIDE [Suspect]
     Active Substance: ARSENIC TRIOXIDE
     Indication: Product used for unknown indication
     Route: 065

REACTIONS (1)
  - Food poisoning [Fatal]
